FAERS Safety Report 24891180 (Version 3)
Quarter: 2025Q1

REPORT INFORMATION
  Report Type: Report from Study
  Country: JP (occurrence: JP)
  Receive Date: 20250127
  Receipt Date: 20250310
  Transmission Date: 20250409
  Serious: Yes (Hospitalization)
  Sender: PFIZER
  Company Number: JP-PFIZER INC-202400195566

PATIENT
  Age: 2 Year
  Sex: Male
  Weight: 11.5 kg

DRUGS (4)
  1. SIROLIMUS [Suspect]
     Active Substance: SIROLIMUS
     Indication: Lymphatic malformation
     Dosage: 0.75 MG,1 D
     Route: 048
     Dates: start: 20221221, end: 20230131
  2. SIROLIMUS [Suspect]
     Active Substance: SIROLIMUS
     Dosage: 0.9 MG,1 D
     Route: 048
     Dates: start: 20230201, end: 20240709
  3. SIROLIMUS [Suspect]
     Active Substance: SIROLIMUS
     Indication: Lymphatic malformation
     Dosage: 1.2 MG,1 D
     Route: 048
     Dates: start: 20240710, end: 20240710
  4. SIROLIMUS [Suspect]
     Active Substance: SIROLIMUS
     Dosage: 1.2 MG,1 D
     Route: 048
     Dates: start: 20240715

REACTIONS (5)
  - Cellulitis streptococcal [Recovering/Resolving]
  - Stomatitis [Recovered/Resolved]
  - Stomatitis [Recovering/Resolving]
  - Drug level increased [Recovered/Resolved]
  - Wound [Unknown]

NARRATIVE: CASE EVENT DATE: 20230329
